FAERS Safety Report 7130207-4 (Version None)
Quarter: 2010Q4

REPORT INFORMATION
  Report Type: 
  Country: None (occurrence: None)
  Receive Date: 20101116
  Receipt Date: 20101103
  Transmission Date: 20110411
  Serious: Yes (Other)
  Sender: FDA-Public Use
  Company Number: DSA_44216_2010

PATIENT
  Age: 74 Year
  Sex: Female

DRUGS (3)
  1. ENALAPRIL MALEATE [Suspect]
     Indication: PRODUCT USED FOR UNKNOWN INDICATION
     Dosage: (DF ORAL)
     Route: 048
  2. ATENOLOL [Concomitant]
  3. NIFEDIPINE [Concomitant]

REACTIONS (1)
  - INTERSTITIAL GRANULOMATOUS DERMATITIS [None]
